FAERS Safety Report 6165589-3 (Version None)
Quarter: 2009Q2

REPORT INFORMATION
  Report Type: 
  Country: None (occurrence: None)
  Receive Date: 20090421
  Receipt Date: 20090323
  Transmission Date: 20091009
  Serious: Yes (Other)
  Sender: FDA-Public Use
  Company Number: DRL-09-006

PATIENT

DRUGS (1)
  1. ALLOPURINOL [Suspect]
     Dosage: 300 MG - ORAL
     Route: 048

REACTIONS (1)
  - DRUG INEFFECTIVE [None]
